FAERS Safety Report 8416672-0 (Version None)
Quarter: 2012Q2

REPORT INFORMATION
  Report Type: 
  Country: None (occurrence: None)
  Receive Date: 20120606
  Receipt Date: 20120604
  Transmission Date: 20120825
  Serious: No
  Sender: FDA-Public Use
  Company Number: US-PFIZER INC-2012134788

PATIENT
  Sex: Female
  Weight: 54.422 kg

DRUGS (3)
  1. ZOLOFT [Suspect]
     Indication: GENERALISED ANXIETY DISORDER
     Dosage: UNK
  2. ZOLOFT [Suspect]
     Dosage: LOWEST DAILY DOSE
  3. ZOLOFT [Suspect]
     Dosage: HIGHER DOSE

REACTIONS (1)
  - ALOPECIA [None]
